FAERS Safety Report 6439960-6 (Version None)
Quarter: 2009Q4

REPORT INFORMATION
  Report Type: 
  Country: None (occurrence: None)
  Receive Date: 20091110
  Receipt Date: 20091026
  Transmission Date: 20100525
  Serious: Yes (Death)
  Sender: FDA-Public Use
  Company Number: 2009AC000067

PATIENT
  Age: 45 Year
  Sex: Female

DRUGS (20)
  1. DIGOXIN [Suspect]
     Dosage: 125 ,CG;QD;PO
     Route: 048
     Dates: start: 20000101
  2. LASIX [Concomitant]
  3. TOPROL-XL [Concomitant]
  4. LISINOPRIL [Concomitant]
  5. ZOLOFT [Concomitant]
  6. AMIODARONE HCL [Concomitant]
  7. ASPIRIN [Concomitant]
  8. COREG [Concomitant]
  9. SULFASALAZINE [Concomitant]
  10. LEVOTHYROXINE [Concomitant]
  11. LEVOTHYROXINE [Concomitant]
  12. SPIRIVA [Concomitant]
  13. NASONEX [Concomitant]
  14. ALVERT [Concomitant]
  15. COQ10 [Concomitant]
  16. CALCIUM [Concomitant]
  17. MAGNESIUM [Concomitant]
  18. COUMADIN [Concomitant]
  19. ALDACTONE [Concomitant]
  20. LEXAPRO [Concomitant]

REACTIONS (30)
  - ANXIETY [None]
  - CARDIAC FAILURE CONGESTIVE [None]
  - CARDIOACTIVE DRUG LEVEL ABOVE THERAPEUTIC [None]
  - CARDIOMYOPATHY [None]
  - COLITIS [None]
  - DEHYDRATION [None]
  - DEPRESSION [None]
  - ECONOMIC PROBLEM [None]
  - EMPHYSEMA [None]
  - FATIGUE [None]
  - FIBROSIS [None]
  - FREQUENT BOWEL MOVEMENTS [None]
  - GAIT DISTURBANCE [None]
  - HEPATIC CONGESTION [None]
  - HEPATIC STEATOSIS [None]
  - HYPOTENSION [None]
  - IMPAIRED WORK ABILITY [None]
  - INTRACARDIAC THROMBUS [None]
  - LOSS OF CONSCIOUSNESS [None]
  - MULTIPLE INJURIES [None]
  - PERICARDIAL EFFUSION [None]
  - PROCEDURAL DIZZINESS [None]
  - PROTHROMBIN TIME PROLONGED [None]
  - PULMONARY CONGESTION [None]
  - PULMONARY OEDEMA [None]
  - RENAL FAILURE [None]
  - RESPIRATORY ARREST [None]
  - SURGERY [None]
  - UNEVALUABLE EVENT [None]
  - VENTRICULAR FIBRILLATION [None]
